APPROVED DRUG PRODUCT: CANDESARTAN CILEXETIL AND HYDROCHLOROTHIAZIDE
Active Ingredient: CANDESARTAN CILEXETIL; HYDROCHLOROTHIAZIDE
Strength: 32MG;12.5MG
Dosage Form/Route: TABLET;ORAL
Application: A090704 | Product #002 | TE Code: AB
Applicant: PHARMOBEDIENT CONSULTING LLC
Approved: Dec 4, 2012 | RLD: No | RS: No | Type: RX